FAERS Safety Report 5088588-1 (Version None)
Quarter: 2006Q3

REPORT INFORMATION
  Report Type: 
  Country: None (occurrence: None)
  Receive Date: 20060825
  Receipt Date: 20060815
  Transmission Date: 20061208
  Serious: Yes (Hospitalization)
  Sender: FDA-Public Use
  Company Number: US-JNJFOC-20060803683

PATIENT
  Sex: Female

DRUGS (1)
  1. FENTANYL TRANSDERMAL SYSTEM [Suspect]
     Indication: BACK DISORDER
     Route: 062

REACTIONS (3)
  - ALOPECIA [None]
  - BLOOD PRESSURE DECREASED [None]
  - THROMBOSIS [None]
